FAERS Safety Report 6522261-5 (Version None)
Quarter: 2009Q4

REPORT INFORMATION
  Report Type: 
  Country: None (occurrence: None)
  Receive Date: 20091230
  Receipt Date: 20091224
  Transmission Date: 20100525
  Serious: Yes (Disabling)
  Sender: FDA-Public Use
  Company Number: GXKR2009KR13836

PATIENT
  Age: 26 Year
  Sex: Female
  Weight: 57 kg

DRUGS (4)
  1. CYCLOSPORINE [Suspect]
     Indication: IMMUNOSUPPRESSION
     Dosage: 75 MG, BID (STARTED 2 YEARS EARLIER)
     Route: 065
  2. AZATHIOPRINE [Concomitant]
     Dosage: 50 MG, BID
  3. DEFLAZACORT [Concomitant]
     Dosage: 6 MG, QD
  4. STEROIDS NOS [Concomitant]
     Indication: RENAL TRANSPLANT

REACTIONS (7)
  - BENIGN INTRACRANIAL HYPERTENSION [None]
  - HEADACHE [None]
  - INTRACRANIAL PRESSURE INCREASED [None]
  - MACULOPATHY [None]
  - OPTIC ATROPHY [None]
  - PAPILLOEDEMA [None]
  - VISUAL IMPAIRMENT [None]
